FAERS Safety Report 7162580-5 (Version None)
Quarter: 2010Q4

REPORT INFORMATION
  Report Type: 
  Country: None (occurrence: None)
  Receive Date: 20101215
  Receipt Date: 20091123
  Transmission Date: 20110411
  Serious: Yes (Other)
  Sender: FDA-Public Use
  Company Number: BR-PFIZER INC-2009301740

PATIENT
  Age: 64 Year
  Sex: Female
  Weight: 55 kg

DRUGS (4)
  1. LYRICA [Suspect]
     Indication: NEURALGIA
     Dosage: 75MG IN MORNING AND 150MG AT NIGHT
     Route: 048
     Dates: start: 20091109, end: 20091114
  2. ATENSINA [Concomitant]
     Dosage: 0.1 MG, DAILY
     Route: 048
  3. TRAMADOL [Concomitant]
     Dosage: 50 MG, DAILY
     Route: 048
  4. EFFEXOR [Concomitant]
     Dosage: 75 MG, DAILY
     Route: 048

REACTIONS (1)
  - VAGINAL HAEMORRHAGE [None]
